FAERS Safety Report 6971919-2 (Version None)
Quarter: 2010Q3

REPORT INFORMATION
  Report Type: 
  Country: None (occurrence: None)
  Receive Date: 20100908
  Receipt Date: 20100908
  Transmission Date: 20110219
  Serious: Yes (Other)
  Sender: FDA-Public Use
  Company Number: None

PATIENT
  Sex: Female
  Weight: 115.6672 kg

DRUGS (1)
  1. LYRICA [Suspect]
     Indication: INFLAMMATORY PAIN
     Dosage: 1 DAILY FOR 1 WK, THEN 2 DAILY, DAILY PO
     Route: 048
     Dates: start: 20100714, end: 20100831

REACTIONS (4)
  - DECREASED APPETITE [None]
  - DRUG INEFFECTIVE [None]
  - FOOD AVERSION [None]
  - NAUSEA [None]
